FAERS Safety Report 9628039 (Version 2)
Quarter: 2013Q4

REPORT INFORMATION
  Report Type: Spontaneous
  Country: US (occurrence: US)
  Receive Date: 20131016
  Receipt Date: 20131101
  Transmission Date: 20140711
  Serious: Yes (Other)
  Sender: FDA-Public Use
  Company Number: US-TEVA-437772USA

PATIENT
  Age: 31 Year
  Sex: Female
  Weight: 63.56 kg

DRUGS (4)
  1. PARAGARD 380A [Suspect]
     Indication: CONTRACEPTION
     Route: 015
     Dates: start: 20130912, end: 20131010
  2. CLOBETASOL [Concomitant]
  3. VERDESO FOAM [Concomitant]
  4. MECLIZINE [Concomitant]

REACTIONS (2)
  - Vaginal haemorrhage [Recovered/Resolved]
  - Abdominal pain [Recovered/Resolved]
